FAERS Safety Report 11655963 (Version 2)
Quarter: 2015Q4

REPORT INFORMATION
  Report Type: Spontaneous
  Country: GB (occurrence: GB)
  Receive Date: 20151023
  Receipt Date: 20151203
  Transmission Date: 20160304
  Serious: Yes (Other)
  Sender: FDA-Public Use
  Company Number: GB-BAYER-2015-444680

PATIENT
  Age: 22 Year
  Sex: Female

DRUGS (1)
  1. MIRENA [Suspect]
     Active Substance: LEVONORGESTREL
     Dosage: 20 MCG/24HR, CONT
     Route: 015
     Dates: start: 201410, end: 201511

REACTIONS (16)
  - Seizure [None]
  - Dizziness [None]
  - Seizure [None]
  - Generalised tonic-clonic seizure [None]
  - Seizure [None]
  - Amnesia [None]
  - Prosopagnosia [None]
  - Generalised tonic-clonic seizure [None]
  - Generalised tonic-clonic seizure [None]
  - Seizure [None]
  - Memory impairment [None]
  - Generalised tonic-clonic seizure [None]
  - Seizure [None]
  - Headache [None]
  - Nervous system disorder [None]
  - Generalised tonic-clonic seizure [None]

NARRATIVE: CASE EVENT DATE: 201412
